FAERS Safety Report 9981320 (Version 2)
Quarter: 2014Q1

REPORT INFORMATION
  Report Type: Spontaneous
  Country: PK (occurrence: PK)
  Receive Date: 20140307
  Receipt Date: 20140317
  Transmission Date: 20141002
  Serious: Yes (Death, Hospitalization)
  Sender: FDA-Public Use
  Company Number: PK-PFIZER INC-2014062681

PATIENT
  Age: 62 Year
  Sex: Female

DRUGS (3)
  1. SUTENT [Suspect]
     Dosage: 25 MG, UNK, 4 TABLETS DURING THE FIRST CYCLE
     Route: 048
     Dates: start: 201308
  2. SUTENT [Suspect]
     Dosage: 25 MG, UNK, 3 TABLETS IN 2ND CYCLE
  3. SUTENT [Suspect]
     Dosage: 25 MG, UNK, 2 TABLETS IN 3RD CYCLE

REACTIONS (3)
  - Cardiac arrest [Fatal]
  - Asthenia [Unknown]
  - Mucosal inflammation [Unknown]
